FAERS Safety Report 4523557-9 (Version None)
Quarter: 2004Q4

REPORT INFORMATION
  Report Type: 
  Country: None (occurrence: None)
  Receive Date: 20041210
  Receipt Date: 20041018
  Transmission Date: 20050328
  Serious: Yes (Death)
  Sender: FDA-Public Use
  Company Number: US-ROCHE-383588

PATIENT
  Age: 39 Year
  Sex: Male
  Weight: 122.7 kg

DRUGS (13)
  1. MYCOPHENOLATE MOFETIL [Suspect]
     Route: 048
  2. PREDNISONE [Suspect]
     Route: 048
     Dates: end: 20041017
  3. CYCLOSPORINE [Suspect]
     Route: 048
  4. AMITRIPTYLINE HCL [Concomitant]
     Dates: start: 20030905, end: 20041018
  5. INSULIN GLARGINE [Concomitant]
     Dates: start: 20030905, end: 20041018
  6. INSULIN [Concomitant]
     Dates: start: 20030905, end: 20041018
  7. BENAZEPRIL HCL [Concomitant]
     Dates: start: 19971218, end: 20041018
  8. ASPIRIN [Concomitant]
     Dates: start: 20030905, end: 20041018
  9. METOPROLOL [Concomitant]
     Dosage: UNITS NOT REPORTED
     Dates: start: 20030905, end: 20041018
  10. BUPROPION HCL [Concomitant]
     Dates: start: 20030905, end: 20041018
  11. LANSOPRAZOLE [Concomitant]
     Dates: start: 20030905
  12. FENTANYL [Concomitant]
     Dates: start: 20030905, end: 20041018
  13. METHYLPHENIDATE [Concomitant]
     Dates: start: 20030905, end: 20041018

REACTIONS (7)
  - BACTERAEMIA [None]
  - CARDIO-RESPIRATORY ARREST [None]
  - COMA [None]
  - NAUSEA [None]
  - THERAPEUTIC RESPONSE DECREASED [None]
  - UROSEPSIS [None]
  - VOMITING [None]
